FAERS Safety Report 25195146 (Version 1)
Quarter: 2025Q2

REPORT INFORMATION
  Report Type: Report from Study
  Country: US (occurrence: US)
  Receive Date: 20250415
  Receipt Date: 20250415
  Transmission Date: 20250716
  Serious: Yes (Other)
  Sender: UCB
  Company Number: US-UCBSA-2025021379

PATIENT
  Age: 18 Year
  Sex: Female

DRUGS (1)
  1. BIMEKIZUMAB [Suspect]
     Active Substance: BIMEKIZUMAB
     Indication: Hidradenitis
     Dosage: 320 MILLIGRAM, EV 2 WEEKS(QOW)
     Dates: start: 20250226

REACTIONS (5)
  - Hallucination [Not Recovered/Not Resolved]
  - Anxiety [Not Recovered/Not Resolved]
  - Paranoia [Not Recovered/Not Resolved]
  - Anger [Not Recovered/Not Resolved]
  - Hidradenitis [Not Recovered/Not Resolved]

NARRATIVE: CASE EVENT DATE: 20250324
